FAERS Safety Report 19057578 (Version 1)
Quarter: 2021Q1

REPORT INFORMATION
  Report Type: Report from Study
  Country: CA (occurrence: US)
  Receive Date: 20210325
  Receipt Date: 20210325
  Transmission Date: 20210420
  Serious: Yes (Death, Other)
  Sender: FDA-Public Use
  Company Number: CA-CHIESI-2021CHF01254

PATIENT
  Sex: Female
  Weight: 77 kg

DRUGS (4)
  1. DEFERIPRONE [Suspect]
     Active Substance: DEFERIPRONE
     Indication: APLASIA PURE RED CELL
  2. DEFERIPRONE [Suspect]
     Active Substance: DEFERIPRONE
     Indication: ANAEMIA
  3. DEFERIPRONE [Suspect]
     Active Substance: DEFERIPRONE
     Indication: NON-HODGKIN^S LYMPHOMA
     Dosage: 39 MILLIGRAM/KILOGRAM, QD
     Route: 048
     Dates: start: 20180612
  4. DEFERIPRONE [Suspect]
     Active Substance: DEFERIPRONE
     Indication: HAEMOSIDEROSIS

REACTIONS (1)
  - Death [Fatal]
